FAERS Safety Report 5188449-3 (Version None)
Quarter: 2006Q4

REPORT INFORMATION
  Report Type: 
  Country: None (occurrence: None)
  Receive Date: 20061221
  Receipt Date: 20060930
  Transmission Date: 20070319
  Serious: No
  Sender: FDA-Public Use
  Company Number: US-AMGEN-US195426

PATIENT
  Sex: Female

DRUGS (1)
  1. ENBREL [Suspect]
     Indication: RHEUMATOID ARTHRITIS
     Route: 058
     Dates: start: 20051201

REACTIONS (6)
  - COUGH [None]
  - CYSTITIS [None]
  - PAIN [None]
  - PNEUMONIA [None]
  - PYREXIA [None]
  - VARICELLA [None]
